FAERS Safety Report 20910065 (Version 2)
Quarter: 2022Q3

REPORT INFORMATION
  Report Type: Spontaneous
  Country: CA (occurrence: CA)
  Receive Date: 20220603
  Receipt Date: 20220706
  Transmission Date: 20221026
  Serious: Yes (Other)
  Sender: FDA-Public Use
  Company Number: CA-BAYER-2022A075878

PATIENT
  Sex: Female

DRUGS (2)
  1. EYLEA [Suspect]
     Active Substance: AFLIBERCEPT
     Indication: Product used for unknown indication
     Dosage: 12 INJECTIONS OF EYLEA IN EACH EYE, FORMULATION: SOLUTION FOR INJECTION
  2. LUCENTIS [Concomitant]
     Active Substance: RANIBIZUMAB
     Indication: Product used for unknown indication

REACTIONS (2)
  - Eye inflammation [Recovered/Resolved]
  - Vitritis [Recovered/Resolved]
